FAERS Safety Report 6307416-7 (Version None)
Quarter: 2009Q3

REPORT INFORMATION
  Report Type: 
  Country: None (occurrence: None)
  Receive Date: 20090813
  Receipt Date: 20090421
  Transmission Date: 20100115
  Serious: Yes (Other)
  Sender: FDA-Public Use
  Company Number: US-BRISTOL-MYERS SQUIBB COMPANY-14482079

PATIENT
  Age: 51 Year
  Sex: Female

DRUGS (4)
  1. IXEMPRA KIT [Suspect]
     Indication: BREAST CANCER METASTATIC
     Route: 042
     Dates: start: 20080812
  2. XANAX [Concomitant]
  3. VICODIN [Concomitant]
  4. OXYCONTIN [Concomitant]

REACTIONS (1)
  - PERIPHERAL MOTOR NEUROPATHY [None]
